FAERS Safety Report 11329120 (Version 2)
Quarter: 2016Q2

REPORT INFORMATION
  Report Type: Spontaneous
  Country: CA (occurrence: CA)
  Receive Date: 20150803
  Receipt Date: 20160426
  Transmission Date: 20160815
  Serious: Yes (Other)
  Sender: FDA-Public Use
  Company Number: CA-ROCHE-1615799

PATIENT
  Age: 46 Year
  Sex: Female

DRUGS (6)
  1. XOLAIR [Suspect]
     Active Substance: OMALIZUMAB
     Indication: ASTHMA
     Route: 058
     Dates: start: 20150716
  2. SALBUTAMOL [Concomitant]
     Active Substance: ALBUTEROL
  3. PREDNISONE. [Concomitant]
     Active Substance: PREDNISONE
  4. ADVAIR HFA [Concomitant]
     Active Substance: FLUTICASONE PROPIONATE\SALMETEROL XINAFOATE
  5. VENTOLIN [Concomitant]
     Active Substance: ALBUTEROL SULFATE
  6. SPIRIVA [Concomitant]
     Active Substance: TIOTROPIUM BROMIDE MONOHYDRATE

REACTIONS (8)
  - Muscle strain [Unknown]
  - Haematoma [Unknown]
  - Drug ineffective [Unknown]
  - Pain in extremity [Unknown]
  - Hypoaesthesia [Unknown]
  - Lymphadenopathy [Unknown]
  - Movement disorder [Unknown]
  - Limb discomfort [Unknown]

NARRATIVE: CASE EVENT DATE: 20150717
